FAERS Safety Report 12924463 (Version 2)
Quarter: 2017Q1

REPORT INFORMATION
  Report Type: Report from Study
  Country: None (occurrence: US)
  Receive Date: 20161109
  Receipt Date: 20170219
  Transmission Date: 20170428
  Serious: Yes (Hospitalization)
  Sender: FDA-Public Use
  Company Number: US-ABBVIE-16K-163-1599322-00

PATIENT
  Sex: Female

DRUGS (3)
  1. HUMIRA [Suspect]
     Active Substance: ADALIMUMAB
     Route: 058
     Dates: start: 20160307
  2. HUMIRA [Suspect]
     Active Substance: ADALIMUMAB
     Route: 058
     Dates: start: 20160222, end: 20160222
  3. HUMIRA [Suspect]
     Active Substance: ADALIMUMAB
     Indication: CROHN^S DISEASE
     Route: 058
     Dates: start: 20160208, end: 20160208

REACTIONS (17)
  - Arthralgia [Unknown]
  - Rectal haemorrhage [Unknown]
  - Fatigue [Recovered/Resolved]
  - Activities of daily living impaired [Unknown]
  - Sinusitis [Unknown]
  - Drug ineffective [Unknown]
  - Constipation [Unknown]
  - Contusion [Unknown]
  - Intestinal obstruction [Unknown]
  - Insomnia [Unknown]
  - Injection site rash [Unknown]
  - Abdominal pain [Unknown]
  - Anxiety [Unknown]
  - Rash [Recovered/Resolved]
  - Injection site erythema [Unknown]
  - Influenza [Recovered/Resolved]
  - Diarrhoea [Unknown]

NARRATIVE: CASE EVENT DATE: 2016
